FAERS Safety Report 10618640 (Version 2)
Quarter: 2014Q4

REPORT INFORMATION
  Report Type: Spontaneous
  Country: JP (occurrence: JP)
  Receive Date: 20141202
  Receipt Date: 20141217
  Transmission Date: 20150529
  Serious: Yes (Other)
  Sender: FDA-Public Use
  Company Number: PHHY2014JP156256

PATIENT
  Age: 75 Year
  Sex: Male

DRUGS (4)
  1. ZOMETA [Suspect]
     Active Substance: ZOLEDRONIC ACID
     Indication: METASTASES TO BONE
     Dosage: UNK
     Route: 042
  2. TAXOL [Concomitant]
     Active Substance: PACLITAXEL
     Indication: METASTASES TO BONE
     Route: 065
  3. CARBOPLATIN. [Concomitant]
     Active Substance: CARBOPLATIN
     Indication: METASTASES TO BONE
     Route: 065
  4. AREDIA [Suspect]
     Active Substance: PAMIDRONATE DISODIUM
     Indication: METASTASES TO BONE
     Dosage: UNK
     Route: 042

REACTIONS (11)
  - Gingival pain [Unknown]
  - Excessive granulation tissue [Not Recovered/Not Resolved]
  - Impaired healing [Not Recovered/Not Resolved]
  - Gingival swelling [Recovering/Resolving]
  - Exposed bone in jaw [Not Recovered/Not Resolved]
  - Purulent discharge [Recovering/Resolving]
  - Osteomyelitis [Unknown]
  - Periodontitis [Not Recovered/Not Resolved]
  - Osteonecrosis of jaw [Not Recovered/Not Resolved]
  - Soft tissue inflammation [Recovering/Resolving]
  - Loose tooth [Not Recovered/Not Resolved]
